FAERS Safety Report 19954672 (Version 4)
Quarter: 2021Q4

REPORT INFORMATION
  Report Type: Spontaneous
  Country: DE (occurrence: DE)
  Receive Date: 20211014
  Receipt Date: 20211130
  Transmission Date: 20220303
  Serious: Yes (Other)
  Sender: FDA-Public Use
  Company Number: DE-MYLANLABS-2021M1072556

PATIENT
  Age: 65 Year
  Sex: Male
  Weight: 95 kg

DRUGS (18)
  1. BUDESONIDE [Suspect]
     Active Substance: BUDESONIDE
     Indication: Asthma
     Dosage: EARLY AND EVENING
     Dates: start: 201802
  2. BUDESONIDE [Suspect]
     Active Substance: BUDESONIDE
     Dosage: IN THE MORNING AND IN THE EVENING
     Dates: start: 201802
  3. FORMOTEROL FUMARATE [Concomitant]
     Active Substance: FORMOTEROL FUMARATE
     Indication: Asthma
     Dosage: MORNING AND IN EVENING
     Dates: start: 201802
  4. FORMOTEROL FUMARATE [Concomitant]
     Active Substance: FORMOTEROL FUMARATE
     Indication: Bronchitis
     Dosage: 1 IN THE MORNING
     Dates: start: 201802
  5. FORMOTEROL FUMARATE [Concomitant]
     Active Substance: FORMOTEROL FUMARATE
     Indication: Asthma
     Dosage: UNK (1 IN THE MORNING AND 1 IN THE EVENING)
  6. BISOPROLOL [Concomitant]
     Active Substance: BISOPROLOL
     Indication: Hypotension
     Dosage: UNK, QD (1 IN THE MORNING)
  7. LOSARTAN [Concomitant]
     Active Substance: LOSARTAN
     Indication: Hypotension
     Dosage: UNK (? IN THE MORNING AND ? IN THE EVENING)
  8. SPIRONOLACTONE [Concomitant]
     Active Substance: SPIRONOLACTONE
     Indication: Dehydration
     Dosage: UNK (? IN THE MORNING)
  9. ROSUVASTATIN [Concomitant]
     Active Substance: ROSUVASTATIN
     Indication: Blood cholesterol decreased
     Dosage: UNK (1 IN THE EVENING)
  10. ASPIRIN [Concomitant]
     Active Substance: ASPIRIN
     Indication: Haemodilution
     Dosage: UNK (1 AT NOON)
  11. TICAGRELOR [Concomitant]
     Active Substance: TICAGRELOR
     Indication: Haemodilution
     Dosage: UNK
     Dates: end: 20211008
  12. VILDAGLIPTIN [Concomitant]
     Active Substance: VILDAGLIPTIN
     Indication: Type 2 diabetes mellitus
     Dosage: UNK (1 IN THE MORNING AND 1 IN THE EVENING)
  13. INSULIN GLARGINE [Concomitant]
     Active Substance: INSULIN GLARGINE
     Indication: Type 2 diabetes mellitus
     Dosage: UNK (15 I.U IN THE MORNING)
  14. PANTOPRAZOLE [Concomitant]
     Active Substance: PANTOPRAZOLE
     Indication: Gastric disorder
     Dosage: UNK (1 IN THE MORNING)
  15. BUDESONIDE [Concomitant]
     Active Substance: BUDESONIDE
     Indication: Bronchitis
     Dosage: UNK (1 IN THE MORNING AND 1 IN THE EVENING)
  16. BUDESONIDE [Concomitant]
     Active Substance: BUDESONIDE
     Indication: Asthma
  17. CETIRIZINE HYDROCHLORIDE [Concomitant]
     Active Substance: CETIRIZINE HYDROCHLORIDE
     Indication: Hypersensitivity
     Dosage: UNK (1 IN THE EVENING)
  18. NYSTATIN [Concomitant]
     Active Substance: NYSTATIN
     Indication: Candida infection
     Dosage: UNK (2 IN THE MORNING AND 2 IN THE EVENING)
     Dates: start: 20210923, end: 20211012

REACTIONS (4)
  - Gastrointestinal candidiasis [Not Recovered/Not Resolved]
  - Constipation [Not Recovered/Not Resolved]
  - Flatulence [Not Recovered/Not Resolved]
  - Epigastric discomfort [Unknown]

NARRATIVE: CASE EVENT DATE: 20180101
